FAERS Safety Report 9073653 (Version 1)
Quarter: 2013Q1

REPORT INFORMATION
  Report Type: Report from Study
  Country: US (occurrence: US)
  Receive Date: 20130129
  Receipt Date: 20130129
  Transmission Date: 20140127
  Serious: No
  Sender: FDA-Public Use
  Company Number: US-ABBOTT-12P-163-0931981-00

PATIENT
  Age: 62 Year
  Sex: Female
  Weight: 68.1 kg

DRUGS (6)
  1. HUMIRA 40 MG/0.8 ML PEN [Suspect]
     Indication: RHEUMATOID ARTHRITIS
     Route: 058
     Dates: start: 20120215
  2. ATENOLOL [Concomitant]
     Indication: HYPERTENSION
     Dates: start: 2002
  3. PREMPRO [Concomitant]
     Indication: POSTMENOPAUSE
     Dates: start: 2002
  4. PREDNISONE [Concomitant]
     Indication: RHEUMATOID ARTHRITIS
     Dates: start: 201201
  5. CELEBREX [Concomitant]
     Indication: PAIN
     Dates: start: 2004
  6. SAVELLA [Concomitant]
     Indication: PAIN
     Dates: start: 2012

REACTIONS (5)
  - Injection site rash [Recovering/Resolving]
  - Injection site induration [Recovered/Resolved]
  - Injection site pruritus [Recovered/Resolved]
  - Injection site swelling [Recovered/Resolved]
  - Arthralgia [Not Recovered/Not Resolved]
